FAERS Safety Report 14440580 (Version 1)
Quarter: 2018Q1

REPORT INFORMATION
  Report Type: Spontaneous
  Country: HU (occurrence: HU)
  Receive Date: 20180125
  Receipt Date: 20180125
  Transmission Date: 20180509
  Serious: Yes (Life-Threatening, Other)
  Sender: FDA-Public Use
  Company Number: HU-BRISTOL-MYERS SQUIBB COMPANY-BMS-2018-006779

PATIENT
  Age: 57 Year
  Sex: Female

DRUGS (1)
  1. METFORMIN HYDROCHLORIDE. [Suspect]
     Active Substance: METFORMIN HYDROCHLORIDE
     Indication: TYPE 2 DIABETES MELLITUS
     Dosage: 1000 MG, QD
     Route: 048
     Dates: start: 20170921, end: 20171224

REACTIONS (8)
  - Liver injury [Unknown]
  - Rhinorrhoea [Recovering/Resolving]
  - Abdominal distension [Recovering/Resolving]
  - Nocturnal dyspnoea [Recovering/Resolving]
  - Dyspnoea exertional [Not Recovered/Not Resolved]
  - Aptyalism [Recovered/Resolved]
  - Fear of death [Recovering/Resolving]
  - Peripheral swelling [Recovering/Resolving]
